FAERS Safety Report 10720423 (Version 1)
Quarter: 2015Q1

REPORT INFORMATION
  Report Type: Spontaneous
  Country: FR (occurrence: FR)
  Receive Date: 20150119
  Receipt Date: 20150119
  Transmission Date: 20150721
  Serious: Yes (Death, Hospitalization, Other)
  Sender: FDA-Public Use
  Company Number: FR-BRISTOL-MYERS SQUIBB COMPANY-BMS-2015-000601

PATIENT
  Age: 80 Year
  Sex: Female

DRUGS (4)
  1. COAPROVEL [Concomitant]
     Active Substance: HYDROCHLOROTHIAZIDE\IRBESARTAN
  2. SOTALEX [Concomitant]
     Active Substance: SOTALOL
  3. LERCAN [Concomitant]
     Active Substance: LERCANIDIPINE
  4. COUMADINE [Suspect]
     Active Substance: WARFARIN SODIUM
     Indication: PRODUCT USED FOR UNKNOWN INDICATION
     Dosage: 2 MG, QD
     Route: 048

REACTIONS (7)
  - Rectal haemorrhage [Unknown]
  - Anaemia [Unknown]
  - Death [Fatal]
  - Overdose [Unknown]
  - International normalised ratio increased [Unknown]
  - Haematuria [Unknown]
  - Adenocarcinoma pancreas [Unknown]

NARRATIVE: CASE EVENT DATE: 20130423
